FAERS Safety Report 4764243-X (Version None)
Quarter: 2005Q3

REPORT INFORMATION
  Report Type: 
  Country: None (occurrence: None)
  Receive Date: 20050906
  Receipt Date: 20050825
  Transmission Date: 20060218
  Serious: Yes (Disabling)
  Sender: FDA-Public Use
  Company Number: USA040360713

PATIENT
  Age: 59 Year
  Sex: Male

DRUGS (2)
  1. CIALIS [Suspect]
     Indication: ERECTILE DYSFUNCTION
     Dosage: 20 MG OTHER
     Route: 050
     Dates: start: 20040211, end: 20040212
  2. BUPROPION [Concomitant]

REACTIONS (12)
  - ANAEMIA [None]
  - C-REACTIVE PROTEIN INCREASED [None]
  - DIZZINESS [None]
  - EYE OEDEMA [None]
  - OPTIC DISC DISORDER [None]
  - OPTIC ISCHAEMIC NEUROPATHY [None]
  - OPTIC NERVE SHEATH HAEMORRHAGE [None]
  - PLATELET COUNT INCREASED [None]
  - PUPILLARY REFLEX IMPAIRED [None]
  - RED BLOOD CELL SEDIMENTATION RATE INCREASED [None]
  - RETINAL EXUDATES [None]
  - VISUAL FIELD DEFECT [None]
